FAERS Safety Report 8651143 (Version 5)
Quarter: 2012Q4

REPORT INFORMATION
  Report Type: 
  Country: JP (occurrence: JP)
  Receive Date: 20120705
  Receipt Date: 20121004
  Transmission Date: 20130627
  Serious: Yes (Life-Threatening, Hospitalization)
  Sender: FDA-Public Use
  Company Number: JP-SANOFI-AVENTIS-2012SA046865

PATIENT
  Age: 57 Year
  Sex: Male

DRUGS (10)
  1. LORATADINE [Suspect]
     Indication: HAY FEVER
     Route: 048
  2. LORATADINE [Suspect]
     Indication: SEASONAL ALLERGY
     Route: 048
  3. FUROSEMIDE [Suspect]
     Indication: DRUG USE FOR UNKNOWN INDICATION
     Route: 065
  4. DILTIAZEM HYDROCHLORIDE [Suspect]
     Indication: ATRIAL FIBRILLATION
     Route: 048
  5. ANCARON [Suspect]
     Indication: TORSADES DE POINTES
     Route: 041
  6. ANCARON [Suspect]
     Indication: CARDIAC FAILURE
     Route: 041
  7. ANCARON [Suspect]
     Indication: ATRIAL FIBRILLATION
     Route: 041
  8. ANCARON [Suspect]
     Indication: VENTRICULAR FIBRILLATION
     Route: 041
  9. CARPERITIDE [Concomitant]
     Route: 051
  10. DOBUTREX [Concomitant]
     Route: 051

REACTIONS (5)
  - Long QT syndrome [Recovering/Resolving]
  - Torsade de pointes [Recovered/Resolved]
  - Ventricular tachycardia [Recovered/Resolved]
  - Ventricular extrasystoles [Recovered/Resolved]
  - Syncope [Unknown]
